FAERS Safety Report 4644837-2 (Version None)
Quarter: 2005Q2

REPORT INFORMATION
  Report Type: 
  Country: None (occurrence: None)
  Receive Date: 20050422
  Receipt Date: 20050413
  Transmission Date: 20051028
  Serious: Yes (Hospitalization)
  Sender: FDA-Public Use
  Company Number: 2005SE00317

PATIENT
  Age: 70 Year
  Sex: Male

DRUGS (4)
  1. BLOPRESS [Suspect]
     Indication: HYPERTENSION
     Dosage: 1 DF QD PO
     Route: 048
     Dates: end: 20050112
  2. SELBEX [Suspect]
     Dates: end: 20050112
  3. LAC B [Concomitant]
  4. DELUX-CM [Concomitant]

REACTIONS (5)
  - ACANTHOSIS [None]
  - CHOLESTASIS [None]
  - COLON ADENOMA [None]
  - ENTEROCOLITIS [None]
  - GASTRITIS ATROPHIC [None]
